FAERS Safety Report 24032371 (Version 1)
Quarter: 2024Q3

REPORT INFORMATION
  Report Type: Report from Study
  Country: CA (occurrence: CA)
  Receive Date: 20240701
  Receipt Date: 20240701
  Transmission Date: 20241016
  Serious: Yes (Other)
  Sender: JOHNSON AND JOHNSON
  Company Number: CA-JNJFOC-20230820605

PATIENT
  Age: 4 Decade
  Sex: Female

DRUGS (4)
  1. REMICADE [Suspect]
     Active Substance: INFLIXIMAB
     Indication: Colitis ulcerative
     Dosage: EXPIRY DATE: -NOV-2025, -SEP-2025,- JUL-2025.  ?ON 24-NOV-2023, PATIENT RECEIVED 8TH INFLIXIMAB INFU
     Route: 041
     Dates: start: 20230104
  2. REMICADE [Suspect]
     Active Substance: INFLIXIMAB
     Dosage: ON 24-NOV-2023, PATIENT RECEIVED 8TH INFLIXIMAB INFUSION AT 390 MG
     Route: 041
     Dates: start: 20231124
  3. REMICADE [Suspect]
     Active Substance: INFLIXIMAB
     Dosage: ALSO REPORTED AS 335 MG ON 18-JAN-2024?EXPIRY: /AUG/2026, EXPIRY: SEP-2026.
     Route: 041
  4. REMICADE [Suspect]
     Active Substance: INFLIXIMAB
     Route: 041

REACTIONS (13)
  - Haematochezia [Not Recovered/Not Resolved]
  - Rectal haemorrhage [Recovering/Resolving]
  - Haemorrhoids [Unknown]
  - Pharyngitis [Unknown]
  - Eye inflammation [Unknown]
  - Stomatitis [Unknown]
  - Mouth ulceration [Unknown]
  - Abdominal pain [Not Recovered/Not Resolved]
  - Diarrhoea [Not Recovered/Not Resolved]
  - Weight decreased [Not Recovered/Not Resolved]
  - Mucous stools [Recovering/Resolving]
  - Pyrexia [Unknown]
  - Off label use [Unknown]

NARRATIVE: CASE EVENT DATE: 20230101
